FAERS Safety Report 18755127 (Version 1)
Quarter: 2021Q1

REPORT INFORMATION
  Report Type: Spontaneous
  Country: US (occurrence: US)
  Receive Date: 20210115
  Receipt Date: 20210115
  Transmission Date: 20210419
  Serious: Yes (Hospitalization)
  Sender: FDA-Public Use
  Company Number: None

PATIENT
  Age: 76 Year
  Sex: Male
  Weight: 76.3 kg

DRUGS (1)
  1. ALTEPLASE. [Suspect]
     Active Substance: ALTEPLASE
     Indication: CEREBROVASCULAR ACCIDENT
     Route: 041
     Dates: start: 20210114, end: 20210114

REACTIONS (3)
  - Nervous system disorder [None]
  - Cerebral haemorrhage [None]
  - Intracranial mass [None]

NARRATIVE: CASE EVENT DATE: 20210114
